FAERS Safety Report 15678818 (Version 1)
Quarter: 2018Q4

REPORT INFORMATION
  Report Type: Spontaneous
  Country: ES (occurrence: ES)
  Receive Date: 20181202
  Receipt Date: 20181202
  Transmission Date: 20190205
  Serious: Yes (Other)
  Sender: FDA-Public Use
  Company Number: PHHY2018ES168597

PATIENT
  Age: 72 Year
  Sex: Male

DRUGS (3)
  1. AMOXICILINA SANDOZ [Suspect]
     Active Substance: AMOXICILLIN
     Indication: BRONCHITIS
     Dosage: 750 MG, Q8H
     Route: 048
     Dates: start: 20181102, end: 20181103
  2. ACETILCISTEINA [Suspect]
     Active Substance: ACETYLCYSTEINE
     Indication: BRONCHITIS
     Dosage: 600 MG, QD
     Route: 048
     Dates: start: 20181102
  3. VENTOLIN [Suspect]
     Active Substance: ALBUTEROL SULFATE
     Indication: BRONCHITIS
     Dosage: 2 DF, Q8H
     Route: 055
     Dates: start: 20181102

REACTIONS (3)
  - Tongue oedema [Unknown]
  - Face oedema [Unknown]
  - Lip oedema [Unknown]

NARRATIVE: CASE EVENT DATE: 20181104
